FAERS Safety Report 4621034-8 (Version None)
Quarter: 2005Q1

REPORT INFORMATION
  Report Type: 
  Country: None (occurrence: None)
  Receive Date: 20050325
  Receipt Date: 20050311
  Transmission Date: 20050727
  Serious: Yes (Hospitalization)
  Sender: FDA-Public Use
  Company Number: 2005SE01204

PATIENT
  Age: 68 Year
  Sex: Female
  Weight: 48 kg

DRUGS (8)
  1. BLOPRESS [Suspect]
     Indication: HYPERTENSION
     Dosage: 8 MG QD PO
     Route: 048
     Dates: start: 20041018, end: 20050217
  2. GASTER D [Suspect]
     Indication: GASTRITIS
     Dosage: 20 MG QD PO
     Route: 048
     Dates: start: 20040611, end: 20050217
  3. AMLODIN [Suspect]
     Indication: HYPERTENSION
     Dosage: 5 MG QD PO
     Route: 048
     Dates: start: 20040614, end: 20050224
  4. ADALAT [Suspect]
     Indication: HYPERTENSION
     Dosage: 60 MG QD PO
     Route: 048
     Dates: start: 20040610, end: 20050226
  5. GLIMICRON [Suspect]
     Indication: DIABETES MELLITUS
     Dosage: 20 MG QD PO
     Route: 048
     Dates: start: 20040701
  6. MEDET [Suspect]
     Indication: DIABETES MELLITUS
     Dosage: 250 MG BID PO
     Route: 048
     Dates: start: 20040701, end: 20050223
  7. THYRADIN-S [Suspect]
     Indication: HORMONE REPLACEMENT THERAPY
     Dosage: 100 UG QD PO
     Route: 048
     Dates: start: 20040801
  8. ALDOMET [Suspect]
     Indication: HYPERTENSION
     Dosage: 125 MG BID PO
     Route: 048
     Dates: start: 20040601

REACTIONS (4)
  - CRYPTOGENIC ORGANIZING PNEUMONIA [None]
  - GASTRITIS [None]
  - INTERSTITIAL LUNG DISEASE [None]
  - THYROID GLAND CANCER [None]
